FAERS Safety Report 22310001 (Version 1)
Quarter: 2023Q2

REPORT INFORMATION
  Report Type: Spontaneous
  Country: US (occurrence: None)
  Receive Date: 20230510
  Receipt Date: 20230510
  Transmission Date: 20230721
  Serious: No
  Sender: FDA-Public Use
  Company Number: None

PATIENT
  Age: 43 Year
  Sex: Female

DRUGS (3)
  1. OLUMIANT [Suspect]
     Active Substance: BARICITINIB
     Indication: Alopecia areata
     Dosage: TAKE 1 TABLET BY MOUTH DAILY  AS DIRECTED?
     Dates: start: 202209
  2. OLUMIANT [Suspect]
     Active Substance: BARICITINIB
     Indication: Alopecia areata
  3. OLUMIANT [Suspect]
     Active Substance: BARICITINIB
     Indication: Alopecia areata

REACTIONS (2)
  - Seasonal allergy [None]
  - Blood pressure abnormal [None]
